FAERS Safety Report 11021247 (Version 1)
Quarter: 2015Q2

REPORT INFORMATION
  Report Type: Spontaneous
  Country: AR (occurrence: AR)
  Receive Date: 20150413
  Receipt Date: 20150413
  Transmission Date: 20150821
  Serious: Yes (Hospitalization)
  Sender: FDA-Public Use
  Company Number: AR-PFIZER INC-2015122273

PATIENT
  Age: 46 Year
  Sex: Female

DRUGS (1)
  1. SUTENT [Suspect]
     Active Substance: SUNITINIB MALATE
     Indication: METASTATIC RENAL CELL CARCINOMA
     Dosage: 37.5 MG, CYCLIC, FOR 28 DAYS AND THEN REST
     Dates: start: 20140316, end: 20150405

REACTIONS (5)
  - Pulmonary oedema [Unknown]
  - Dyspnoea [Unknown]
  - Disease progression [Unknown]
  - Metastatic renal cell carcinoma [Unknown]
  - Malaise [Unknown]

NARRATIVE: CASE EVENT DATE: 20150405
